FAERS Safety Report 10237068 (Version 1)
Quarter: 2014Q1

REPORT INFORMATION
  Report Type: Spontaneous
  Country: US (occurrence: None)
  Receive Date: 20140306
  Receipt Date: 20140306
  Transmission Date: 20141002
  Serious: Yes (Other)
  Sender: FDA-Public Use
  Company Number: 163-21880-13081718

PATIENT
  Age: 77 Year
  Sex: Male

DRUGS (6)
  1. REVLIMID [Suspect]
     Indication: PLASMA CELL MYELOMA
     Route: 048
     Dates: start: 20130808, end: 20130810
  2. AMLODIPINE [Concomitant]
  3. ATORVASTATIN [Concomitant]
  4. GLIPIZIDE [Concomitant]
  5. TYLENOL (PARACETAMOL) [Concomitant]
  6. VITAMIN D (ERGOCALCIFEROL) [Concomitant]

REACTIONS (2)
  - Angioedema [None]
  - Rash [None]
